FAERS Safety Report 6125474-X (Version None)
Quarter: 2009Q1

REPORT INFORMATION
  Report Type: 
  Country: None (occurrence: None)
  Receive Date: 20090319
  Receipt Date: 20090319
  Transmission Date: 20090719
  Serious: Yes (Hospitalization)
  Sender: FDA-Public Use
  Company Number: None

PATIENT
  Age: 60 Year

DRUGS (1)
  1. FUROSEMIDE [Suspect]
     Indication: OEDEMA
     Dosage: 20 MG EVERY DAY IV
     Route: 042
     Dates: start: 20090302, end: 20090303

REACTIONS (4)
  - DRY SKIN [None]
  - RASH ERYTHEMATOUS [None]
  - SKIN LACERATION [None]
  - SKIN WARM [None]
